FAERS Safety Report 4331734-5 (Version None)
Quarter: 2004Q2

REPORT INFORMATION
  Report Type: 
  Country: None (occurrence: None)
  Receive Date: 20040405
  Receipt Date: 20030506
  Transmission Date: 20050107
  Serious: No
  Sender: FDA-Public Use
  Company Number: US-GLAXOSMITHKLINE-A0407359A

PATIENT
  Sex: Female

DRUGS (11)
  1. FLOVENT [Suspect]
     Indication: BRONCHITIS
     Dosage: 2PUFF TWICE PER DAY
     Route: 055
     Dates: start: 20001217
  2. SEREVENT [Concomitant]
  3. COMBIVENT [Concomitant]
  4. SINGULAIR [Concomitant]
  5. WELLBUTRIN [Concomitant]
  6. ATROVENT [Concomitant]
  7. LASIX [Concomitant]
  8. POTASSIUM [Concomitant]
  9. DIURETICS [Concomitant]
  10. LOTREL [Concomitant]
  11. UNKNOWN MEDICATION [Concomitant]

REACTIONS (3)
  - DYSPNOEA [None]
  - FLUID RETENTION [None]
  - PHARMACEUTICAL PRODUCT COMPLAINT [None]
